FAERS Safety Report 11875271 (Version 1)
Quarter: 2015Q4

REPORT INFORMATION
  Report Type: Spontaneous
  Country: US (occurrence: None)
  Receive Date: 20151228
  Receipt Date: 20151228
  Transmission Date: 20160305
  Serious: Yes (Disabling)
  Sender: FDA-Public Use
  Company Number: None

PATIENT
  Age: 82 Year
  Sex: Female
  Weight: 54.43 kg

DRUGS (11)
  1. SIMBRINZA [Suspect]
     Active Substance: BRIMONIDINE TARTRATE\BRINZOLAMIDE
     Indication: GLAUCOMA
     Route: 047
  2. OMEPROZOLE [Concomitant]
     Active Substance: OMEPRAZOLE
  3. LOSARTAN. [Concomitant]
     Active Substance: LOSARTAN
  4. METHOTREXATE [Concomitant]
     Active Substance: METHOTREXATE
  5. ALPHAGAN EYE DROPS [Concomitant]
  6. CALCIUM WITH VITAMIN D [Concomitant]
     Active Substance: CALCIUM\VITAMIN D
  7. CLONIDINE. [Concomitant]
     Active Substance: CLONIDINE
  8. GLUCOSAMINE MSM [Concomitant]
  9. FISH OIL [Concomitant]
     Active Substance: FISH OIL
  10. DILTIAZEM [Concomitant]
     Active Substance: DILTIAZEM
  11. MULTI VITAMIN-MINERALS [Concomitant]

REACTIONS (1)
  - Somnolence [None]

NARRATIVE: CASE EVENT DATE: 20150720
